FAERS Safety Report 8050846-6 (Version None)
Quarter: 2012Q1

REPORT INFORMATION
  Report Type: 
  Country: None (occurrence: None)
  Receive Date: 20120117
  Receipt Date: 20120107
  Transmission Date: 20120608
  Serious: Yes (Hospitalization, Other)
  Sender: FDA-Public Use
  Company Number: PHHY2012NL002035

PATIENT
  Age: 53 Year
  Sex: Female
  Weight: 98 kg

DRUGS (2)
  1. LITHIUM CARBONATE [Suspect]
     Indication: BIPOLAR DISORDER
     Dosage: UNK
  2. CLOZAPINE [Suspect]
     Indication: BIPOLAR DISORDER
     Dosage: UNK

REACTIONS (22)
  - ATRIOVENTRICULAR BLOCK [None]
  - PALPITATIONS [None]
  - EXTENSOR PLANTAR RESPONSE [None]
  - EYE MOVEMENT DISORDER [None]
  - HYPOTHYROIDISM [None]
  - HEART RATE DECREASED [None]
  - ADAMS-STOKES SYNDROME [None]
  - MULTIPLE SCLEROSIS [None]
  - MOTOR DYSFUNCTION [None]
  - BLOOD PRESSURE INCREASED [None]
  - METABOLIC DISORDER [None]
  - HYPOAESTHESIA [None]
  - OBESITY [None]
  - ORTHOSTATIC HYPOTENSION [None]
  - BRADYPHRENIA [None]
  - HEART VALVE INCOMPETENCE [None]
  - IRRITABLE BOWEL SYNDROME [None]
  - MYOCARDIAL ISCHAEMIA [None]
  - OEDEMA PERIPHERAL [None]
  - CIRCULATORY COLLAPSE [None]
  - DIZZINESS [None]
  - CENTRAL VENOUS PRESSURE INCREASED [None]
